FAERS Safety Report 16571568 (Version 1)
Quarter: 2019Q3

REPORT INFORMATION
  Report Type: Spontaneous
  Country: JP (occurrence: JP)
  Receive Date: 20190715
  Receipt Date: 20190715
  Transmission Date: 20191004
  Serious: Yes (Disabling)
  Sender: FDA-Public Use
  Company Number: JP-PFIZER INC-2019054853

PATIENT
  Age: 65 Year
  Sex: Male

DRUGS (3)
  1. LYRICA [Suspect]
     Active Substance: PREGABALIN
     Dosage: 1 DF, 1X/DAY
     Route: 048
     Dates: start: 20181226
  2. LYRICA [Suspect]
     Active Substance: PREGABALIN
     Dosage: 75 MG, 1X/DAY
     Route: 048
     Dates: end: 20190107
  3. LYRICA [Suspect]
     Active Substance: PREGABALIN
     Dosage: 150 MG, DAILY (6 TABLETS)
     Route: 048
     Dates: start: 20190108, end: 20190123

REACTIONS (4)
  - Photophobia [Recovering/Resolving]
  - Drug ineffective [Unknown]
  - Visual field defect [Recovering/Resolving]
  - Photopsia [Recovering/Resolving]

NARRATIVE: CASE EVENT DATE: 20190108
